FAERS Safety Report 5655193-5 (Version None)
Quarter: 2008Q1

REPORT INFORMATION
  Report Type: 
  Country: None (occurrence: None)
  Receive Date: 20080307
  Receipt Date: 20080304
  Transmission Date: 20080703
  Serious: Yes (Life-Threatening, Hospitalization, Disabling)
  Sender: FDA-Public Use
  Company Number: GB-ROCHE-551158

PATIENT
  Age: 49 Year
  Sex: Female
  Weight: 92 kg

DRUGS (17)
  1. CELLCEPT [Suspect]
     Indication: RENAL TRANSPLANT
     Route: 048
     Dates: start: 20040701, end: 20080201
  2. ADALAT [Concomitant]
     Route: 048
  3. ALFACALCIDOL [Concomitant]
     Route: 048
  4. AMLODIPINE [Concomitant]
     Route: 048
  5. ATORVASTATIN CALCIUM [Concomitant]
     Route: 048
  6. AZATHIOPRINE [Concomitant]
     Route: 048
  7. BECLOMETHASONE DIPROPIONATE [Concomitant]
     Route: 055
  8. COMBIVENT [Concomitant]
     Route: 048
  9. FUROSEMIDE [Concomitant]
     Route: 048
  10. GABAPENTIN [Concomitant]
     Route: 048
  11. ACETAMINOPHEN [Concomitant]
     Route: 048
  12. PREDNISOLONE [Concomitant]
     Route: 048
  13. PREMARIN [Concomitant]
     Route: 048
  14. SALMETEROL [Concomitant]
     Route: 055
  15. SENNA [Concomitant]
     Route: 048
  16. TACROLIMUS [Concomitant]
     Route: 048
  17. TRIMETHOPRIM [Concomitant]
     Route: 048

REACTIONS (1)
  - BRONCHIECTASIS [None]
